FAERS Safety Report 9154185 (Version 1)
Quarter: 2013Q1

REPORT INFORMATION
  Report Type: Spontaneous
  Country: US (occurrence: US)
  Receive Date: 20130311
  Receipt Date: 20130311
  Transmission Date: 20140127
  Serious: Yes (Hospitalization, Other)
  Sender: FDA-Public Use
  Company Number: US-BRISTOL-MYERS SQUIBB COMPANY-17449679

PATIENT
  Sex: Male

DRUGS (1)
  1. YERVOY [Suspect]
     Indication: MALIGNANT MELANOMA

REACTIONS (5)
  - Colitis [Unknown]
  - Oropharyngeal squamous cell carcinoma [Unknown]
  - Oropharyngeal pain [Unknown]
  - Dysphagia [Unknown]
  - Weight decreased [Unknown]
